FAERS Safety Report 14193007 (Version 1)
Quarter: 2017Q4

REPORT INFORMATION
  Report Type: Not Available
  Country: None (occurrence: US)
  Receive Date: 20171115
  Receipt Date: 20171115
  Transmission Date: 20180321
  Serious: No
  Sender: FDA-Public Use
  Company Number: US-AKORN-56299

PATIENT
  Sex: Male

DRUGS (1)
  1. LIDOCAINE 2.5% AND PRILOCAINE 2.5% CREAM [Suspect]
     Active Substance: LIDOCAINE\PRILOCAINE

REACTIONS (1)
  - Drug ineffective [Unknown]
